FAERS Safety Report 6384191-1 (Version None)
Quarter: 2009Q4

REPORT INFORMATION
  Report Type: 
  Country: None (occurrence: None)
  Receive Date: 20091001
  Receipt Date: 20090922
  Transmission Date: 20100525
  Serious: Yes (Death, Hospitalization)
  Sender: FDA-Public Use
  Company Number: A0808173A

PATIENT
  Age: 64 Year
  Sex: Male

DRUGS (1)
  1. AVANDIA [Suspect]
     Dosage: 8MG PER DAY
     Dates: start: 20000401, end: 20030501

REACTIONS (7)
  - CARDIAC DISORDER [None]
  - CARDIAC FAILURE CONGESTIVE [None]
  - CORONARY ARTERY BYPASS [None]
  - HYPOXIA [None]
  - ISCHAEMIC CARDIOMYOPATHY [None]
  - LEFT VENTRICULAR FAILURE [None]
  - PULMONARY OEDEMA [None]
